FAERS Safety Report 5464115-1 (Version None)
Quarter: 2007Q3

REPORT INFORMATION
  Report Type: 
  Country: None (occurrence: None)
  Receive Date: 20070921
  Receipt Date: 20070917
  Transmission Date: 20080115
  Serious: Yes (Other)
  Sender: FDA-Public Use
  Company Number: US-AMGEN-US243684

PATIENT
  Age: 27 Year
  Sex: Female

DRUGS (2)
  1. NEUPOGEN [Suspect]
     Indication: NEUTROPENIA
     Route: 065
  2. OXYMETHOLONE [Suspect]
     Route: 065

REACTIONS (2)
  - SPLENIC RUPTURE [None]
  - VASCULAR PURPURA [None]
